FAERS Safety Report 4609176-4 (Version None)
Quarter: 2005Q1

REPORT INFORMATION
  Report Type: 
  Country: None (occurrence: None)
  Receive Date: 20050314
  Receipt Date: 20050224
  Transmission Date: 20050727
  Serious: Yes (Hospitalization)
  Sender: FDA-Public Use
  Company Number: DSA_25986_2005

PATIENT
  Age: 60 Year
  Sex: Female

DRUGS (11)
  1. TAVOR [Suspect]
     Dosage: 3 MG PO
     Route: 048
     Dates: end: 20010319
  2. TAVOR [Suspect]
     Dosage: 2.5 MG PO
     Route: 048
     Dates: start: 20010320
  3. ERGENYL ^LABAZ^ [Suspect]
     Dosage: 800 MG PO
     Route: 048
  4. HYPNOREX [Suspect]
     Dosage: 2 TAB PO; A FEW MONTHS
     Route: 048
  5. JATROSOM N [Suspect]
     Dosage: 40 MG PO; A FEW MONTHS
     Route: 048
     Dates: end: 20010208
  6. JATROSOM N [Suspect]
     Dosage: 30 MG PO
     Route: 048
     Dates: start: 20010209
  7. TOPAMAX [Suspect]
     Dosage: 25 MG PO
     Route: 048
     Dates: start: 20010129, end: 20010203
  8. TOPAMAX [Suspect]
     Dosage: 50 MG PO
     Route: 048
     Dates: start: 20010204, end: 20010208
  9. MPA [Concomitant]
  10. MAGNESIUM [Concomitant]
  11. ESTRADERM [Concomitant]

REACTIONS (3)
  - CEREBELLAR SYNDROME [None]
  - DEPRESSED LEVEL OF CONSCIOUSNESS [None]
  - DRUG INTERACTION [None]
